FAERS Safety Report 5340846-9 (Version None)
Quarter: 2007Q2

REPORT INFORMATION
  Report Type: 
  Country: None (occurrence: None)
  Receive Date: 20070531
  Receipt Date: 20070523
  Transmission Date: 20071010
  Serious: Yes (Hospitalization)
  Sender: FDA-Public Use
  Company Number: DE-ABBOTT-07P-062-0367943-00

PATIENT
  Age: 83 Year
  Sex: Male
  Weight: 84 kg

DRUGS (13)
  1. ZEMPLAR [Suspect]
     Indication: DIABETIC NEUROPATHY
     Dates: start: 20050728, end: 20050818
  2. ZEMPLAR [Suspect]
     Indication: DIALYSIS
  3. ATACANT [Concomitant]
     Indication: DRUG USE FOR UNKNOWN INDICATION
     Dates: start: 20050425
  4. PANTOPRAZOLE SODIUM [Concomitant]
     Indication: DRUG USE FOR UNKNOWN INDICATION
     Dates: start: 20050425
  5. VITARENAL [Concomitant]
     Indication: DRUG USE FOR UNKNOWN INDICATION
     Dates: start: 20050425
  6. CARBIDOPA + LEVODOPA [Concomitant]
     Indication: DRUG USE FOR UNKNOWN INDICATION
     Dates: start: 20050425
  7. PRIMIDONE [Concomitant]
     Indication: DRUG USE FOR UNKNOWN INDICATION
     Dates: start: 20050425
  8. ERYPOETIN [Concomitant]
     Indication: DRUG USE FOR UNKNOWN INDICATION
     Dates: start: 20050427
  9. ATRAPHANA 30 NOVOLET [Concomitant]
     Indication: DRUG USE FOR UNKNOWN INDICATION
     Dates: start: 20060121
  10. ALFACALCIDOL [Concomitant]
     Indication: DRUG USE FOR UNKNOWN INDICATION
     Dates: start: 20051117
  11. ABBOKINASE [Concomitant]
     Indication: DRUG USE FOR UNKNOWN INDICATION
     Dates: start: 20051103, end: 20051108
  12. HEPARIN-FRACTION, SODIUM SALT [Concomitant]
     Indication: DRUG USE FOR UNKNOWN INDICATION
     Dates: start: 20050929
  13. TORSEMIDE [Concomitant]
     Indication: DRUG USE FOR UNKNOWN INDICATION
     Dates: start: 20050709

REACTIONS (5)
  - FALL [None]
  - HAEMATOMA [None]
  - HYPERCALCAEMIA [None]
  - SHUNT THROMBOSIS [None]
  - SKIN LACERATION [None]
